FAERS Safety Report 4692290-5 (Version None)
Quarter: 2005Q2

REPORT INFORMATION
  Report Type: 
  Country: None (occurrence: None)
  Receive Date: 20050614
  Receipt Date: 20050601
  Transmission Date: 20051028
  Serious: Yes (Disabling)
  Sender: FDA-Public Use
  Company Number: LTI2005A00057

PATIENT
  Age: 70 Year
  Sex: Male

DRUGS (7)
  1. ACTOS [Suspect]
     Indication: DIABETES MELLITUS NON-INSULIN-DEPENDENT
     Dosage: 45 MG (45 MG, 1 IN 1 D) ORAL
     Route: 048
     Dates: start: 20041019
  2. ACTOS [Suspect]
     Indication: DIABETES MELLITUS NON-INSULIN-DEPENDENT
     Dosage: 45 MG (45 MG, 1 IN 1 D) ORAL
     Route: 048
     Dates: start: 20050201
  3. DIAMICRON (GLICLAZIDE) [Concomitant]
  4. GLUCOPHAGE [Concomitant]
  5. TENORMIN [Concomitant]
  6. ATORVASTATIN CALCIUM [Concomitant]
  7. KARDEGIC (ACETYLSALICYLATE LYSINE) [Concomitant]

REACTIONS (5)
  - BLOOD TRIGLYCERIDES INCREASED [None]
  - HYPOKINESIA [None]
  - SEXUAL DYSFUNCTION [None]
  - SHOULDER PAIN [None]
  - WEIGHT INCREASED [None]
